FAERS Safety Report 11483258 (Version 1)
Quarter: 2015Q3

REPORT INFORMATION
  Report Type: Spontaneous
  Country: GB (occurrence: None)
  Receive Date: 20150908
  Receipt Date: 20150908
  Transmission Date: 20151125
  Serious: Yes (Other)
  Sender: FDA-Public Use
  Company Number: GB-ALSI-201500176

PATIENT
  Age: 73 Year
  Sex: Female
  Weight: 89 kg

DRUGS (2)
  1. OXYGEN. [Suspect]
     Active Substance: OXYGEN
     Indication: PRODUCT USED FOR UNKNOWN INDICATION
     Dates: start: 20150811
  2. FUSIDIC ACID [Suspect]
     Active Substance: FUSIDIC ACID
     Indication: PRODUCT USED FOR UNKNOWN INDICATION
     Dosage: NASAL
     Route: 045
     Dates: start: 20150811

REACTIONS (2)
  - Drug interaction [None]
  - Thermal burn [None]

NARRATIVE: CASE EVENT DATE: 20150811
